FAERS Safety Report 4000270 (Version 30)
Quarter: 2013Q4

REPORT INFORMATION
  Report Type: Spontaneous
  Country: US (occurrence: US)
  Receive Date: 20000510
  Receipt Date: 20131223
  Transmission Date: 20140711
  Serious: Yes (Hospitalization, Disabling, Other)
  Sender: FDA-Public Use
  Company Number: US-ROCHE-231499

PATIENT
  Age: 20 Year
  Sex: Male

DRUGS (4)
  1. ACCUTANE [Suspect]
     Indication: ACNE CYSTIC
     Route: 048
     Dates: start: 19990104, end: 19990125
  2. ACCUTANE [Suspect]
     Route: 048
     Dates: start: 19990126, end: 19990419
  3. ACCUTANE [Suspect]
     Route: 048
     Dates: start: 19990420, end: 199907
  4. ZANTAC [Concomitant]
     Route: 048

REACTIONS (30)
  - Crohn^s disease [Not Recovered/Not Resolved]
  - Inflammatory bowel disease [Unknown]
  - Small intestinal obstruction [Recovering/Resolving]
  - Weight decreased [Unknown]
  - Mallory-Weiss syndrome [Recovering/Resolving]
  - Diarrhoea [Unknown]
  - Flatulence [Unknown]
  - Abdominal distension [Unknown]
  - Eating disorder [Unknown]
  - Haematochezia [Unknown]
  - Weight decreased [Unknown]
  - Asthenia [Unknown]
  - Nausea [Unknown]
  - Vomiting [Unknown]
  - Abdominal pain [Unknown]
  - Haematemesis [Unknown]
  - Iron deficiency anaemia [Not Recovered/Not Resolved]
  - Dry eye [Unknown]
  - Abnormal faeces [Unknown]
  - Gastroenteritis [Recovered/Resolved]
  - Weight increased [Recovered/Resolved]
  - Abdominal discomfort [Recovered/Resolved]
  - Fatigue [Recovered/Resolved]
  - Abdominal pain upper [Recovering/Resolving]
  - Epistaxis [Recovered/Resolved]
  - Pyrexia [Recovered/Resolved]
  - Dermatitis [Unknown]
  - Epstein-Barr virus infection [Unknown]
  - Depression [Unknown]
  - Adjustment disorder [Unknown]
